FAERS Safety Report 13356691 (Version 2)
Quarter: 2017Q1

REPORT INFORMATION
  Report Type: Report from Study
  Country: US (occurrence: US)
  Receive Date: 20170321
  Receipt Date: 20170328
  Transmission Date: 20170429
  Serious: Yes (Hospitalization, Other)
  Sender: FDA-Public Use
  Company Number: US-GILEAD-2017-0263471

PATIENT
  Age: 43 Year
  Sex: Female

DRUGS (15)
  1. ALBUTEROL                          /00139501/ [Concomitant]
     Active Substance: ALBUTEROL
  2. PLAQUENIL                          /00072602/ [Concomitant]
     Active Substance: HYDROXYCHLOROQUINE DIPHOSPHATE
  3. SEVELAMER [Concomitant]
     Active Substance: SEVELAMER
  4. ASA [Concomitant]
     Active Substance: ASPIRIN
  5. METOPROLOL. [Concomitant]
     Active Substance: METOPROLOL
  6. PREDNISONE. [Concomitant]
     Active Substance: PREDNISONE
  7. WARFARIN [Concomitant]
     Active Substance: WARFARIN
  8. UPTRAVI [Concomitant]
     Active Substance: SELEXIPAG
  9. LOTREL                             /01388302/ [Concomitant]
     Active Substance: LOTEPREDNOL ETABONATE
  10. MIRALAX [Concomitant]
     Active Substance: POLYETHYLENE GLYCOL 3350
  11. NEXIUM [Concomitant]
     Active Substance: ESOMEPRAZOLE MAGNESIUM
  12. AMBRISENTAN [Suspect]
     Active Substance: AMBRISENTAN
     Indication: PRODUCT USED FOR UNKNOWN INDICATION
     Dosage: 10 MG, QD
     Route: 065
  13. SENSIPAR [Concomitant]
     Active Substance: CINACALCET HYDROCHLORIDE
  14. CLONIDINE. [Concomitant]
     Active Substance: CLONIDINE
  15. SELEXIPAG [Concomitant]
     Active Substance: SELEXIPAG

REACTIONS (3)
  - Systemic lupus erythematosus [Recovered/Resolved]
  - Erythema [Recovered/Resolved]
  - Contrast media allergy [Recovered/Resolved]
